FAERS Safety Report 17250153 (Version 4)
Quarter: 2024Q1

REPORT INFORMATION
  Report Type: Spontaneous
  Country: CA (occurrence: CA)
  Receive Date: 20200109
  Receipt Date: 20240214
  Transmission Date: 20240410
  Serious: Yes (Other)
  Sender: FDA-Public Use
  Company Number: CA-AUROBINDO-AUR-APL-2020-000432

PATIENT
  Age: 55 Year
  Sex: Female

DRUGS (58)
  1. CELECOXIB [Interacting]
     Active Substance: CELECOXIB
     Indication: Arthritis
     Dosage: UNK
     Route: 065
  2. CELECOXIB [Interacting]
     Active Substance: CELECOXIB
     Indication: Rheumatoid arthritis
     Dosage: UNK
     Route: 065
  3. CELECOXIB [Interacting]
     Active Substance: CELECOXIB
     Indication: Rheumatoid arthritis
     Dosage: UNK
     Route: 065
  4. CELECOXIB [Interacting]
     Active Substance: CELECOXIB
     Indication: Arthritis
  5. PREGABALIN [Interacting]
     Active Substance: PREGABALIN
     Indication: Rheumatoid arthritis
     Dosage: UNK
     Route: 065
  6. PREGABALIN [Interacting]
     Active Substance: PREGABALIN
     Indication: Product used for unknown indication
     Dosage: UNK
     Route: 065
  7. ACTEMRA [Interacting]
     Active Substance: TOCILIZUMAB
     Indication: Product used for unknown indication
     Dosage: UNK
     Route: 065
  8. ALLOPURINOL [Interacting]
     Active Substance: ALLOPURINOL
     Indication: Rheumatoid arthritis
     Dosage: UNK
     Route: 065
  9. AMITRIPTYLINE [Interacting]
     Active Substance: AMITRIPTYLINE
     Indication: Rheumatoid arthritis
     Dosage: UNK
     Route: 065
  10. AMITRIPTYLINE [Interacting]
     Active Substance: AMITRIPTYLINE
     Indication: Rheumatoid arthritis
     Dosage: UNK
     Route: 065
  11. AMITRIPTYLINE [Interacting]
     Active Substance: AMITRIPTYLINE
     Indication: Rheumatoid arthritis
     Dosage: UNK
     Route: 065
  12. PERPHENAZINE AND AMITRIPTYLINE HYDROCHLORIDE [Interacting]
     Active Substance: AMITRIPTYLINE HYDROCHLORIDE\PERPHENAZINE
     Indication: Rheumatoid arthritis
     Dosage: UNK
     Route: 065
  13. PERPHENAZINE AND AMITRIPTYLINE HYDROCHLORIDE [Interacting]
     Active Substance: AMITRIPTYLINE HYDROCHLORIDE\PERPHENAZINE
     Dosage: UNK
     Route: 065
  14. AMITRIPTYLINE HYDROCHLORIDE [Interacting]
     Active Substance: AMITRIPTYLINE HYDROCHLORIDE
     Indication: Rheumatoid arthritis
     Dosage: UNK
     Route: 065
  15. AZATHIOPRINE [Interacting]
     Active Substance: AZATHIOPRINE
     Indication: Product used for unknown indication
     Dosage: UNK
     Route: 065
  16. DICLOFENAC SODIUM [Interacting]
     Active Substance: DICLOFENAC\DICLOFENAC SODIUM
     Indication: Rheumatoid arthritis
     Dosage: UNK
     Route: 065
  17. DICLOFENAC [Interacting]
     Active Substance: DICLOFENAC
     Indication: Rheumatoid arthritis
     Dosage: UNK
     Route: 061
  18. LEFLUNOMIDE [Interacting]
     Active Substance: LEFLUNOMIDE
     Indication: Product used for unknown indication
     Dosage: UNK
     Route: 065
  19. NAPROXEN [Interacting]
     Active Substance: NAPROXEN
     Indication: Product used for unknown indication
     Dosage: UNK
     Route: 065
  20. PREDNISONE [Interacting]
     Active Substance: PREDNISONE
     Indication: Rheumatoid arthritis
     Dosage: 5 MILLIGRAM
     Route: 065
  21. ARAVA [Interacting]
     Active Substance: LEFLUNOMIDE
     Indication: Product used for unknown indication
     Dosage: UNK
     Route: 065
  22. ARTHROTEC [Interacting]
     Active Substance: DICLOFENAC SODIUM\MISOPROSTOL
     Indication: Rheumatoid arthritis
     Dosage: UNK
     Route: 065
  23. AZATHIOPRINE [Interacting]
     Active Substance: AZATHIOPRINE
     Indication: Product used for unknown indication
     Dosage: UNK
     Route: 065
  24. CELEBREX [Interacting]
     Active Substance: CELECOXIB
     Indication: Rheumatoid arthritis
     Dosage: UNK
     Route: 065
  25. CELEBREX [Interacting]
     Active Substance: CELECOXIB
     Indication: Arthritis
  26. CELEBREX [Interacting]
     Active Substance: CELECOXIB
     Indication: Rheumatoid arthritis
     Dosage: UNK
     Route: 065
  27. CELEBREX [Interacting]
     Active Substance: CELECOXIB
     Indication: Arthritis
  28. DICLOFENAC [Interacting]
     Active Substance: DICLOFENAC
     Indication: Rheumatoid arthritis
     Dosage: UNK
     Route: 065
  29. DICLOFENAC [Interacting]
     Active Substance: DICLOFENAC
     Dosage: UNK
     Route: 065
  30. DICLOFENAC POTASSIUM [Interacting]
     Active Substance: DICLOFENAC POTASSIUM
     Indication: Rheumatoid arthritis
     Dosage: UNK
     Route: 065
  31. DICLOFENAC SODIUM [Interacting]
     Active Substance: DICLOFENAC\DICLOFENAC SODIUM
     Indication: Rheumatoid arthritis
     Dosage: UNK
     Route: 065
  32. ENBREL [Interacting]
     Active Substance: ETANERCEPT
     Indication: Rheumatoid arthritis
     Dosage: 50 MILLIGRAM, EVERY WEEK
     Route: 058
  33. ETANERCEPT [Interacting]
     Active Substance: ETANERCEPT
     Indication: Rheumatoid arthritis
     Dosage: UNK
     Route: 065
  34. HUMIRA [Interacting]
     Active Substance: ADALIMUMAB
     Indication: Rheumatoid arthritis
     Dosage: 40 MILLIGRAM
     Route: 058
  35. HYDROXYCHLOROQUINE [Interacting]
     Active Substance: HYDROXYCHLOROQUINE
     Indication: Product used for unknown indication
     Dosage: UNK
     Route: 065
  36. HYDROXYCHLOROQUINE [Interacting]
     Active Substance: HYDROXYCHLOROQUINE
     Dosage: UNK
     Route: 065
  37. HYDROXYCHLOROQUINE SULFATE [Interacting]
     Active Substance: HYDROXYCHLOROQUINE SULFATE
     Indication: Rheumatoid arthritis
     Dosage: UNK
     Route: 065
  38. HYDROXYCHLOROQUINE SULFATE [Interacting]
     Active Substance: HYDROXYCHLOROQUINE SULFATE
     Dosage: UNK
     Route: 065
  39. LEFLUNOMIDE [Interacting]
     Active Substance: LEFLUNOMIDE
     Indication: Product used for unknown indication
     Dosage: UNK
     Route: 065
  40. LYRICA [Interacting]
     Active Substance: PREGABALIN
     Indication: Rheumatoid arthritis
     Dosage: UNK
     Route: 065
  41. METHOTREXATE [Interacting]
     Active Substance: METHOTREXATE
     Indication: Rheumatoid arthritis
     Dosage: UNK
     Route: 058
  42. METHOTREXATE [Interacting]
     Active Substance: METHOTREXATE
     Indication: Rheumatoid arthritis
     Dosage: UNK
     Route: 051
  43. METHOTREXATE [Interacting]
     Active Substance: METHOTREXATE
     Dosage: UNK
     Route: 048
  44. METHOTREXATE [Interacting]
     Active Substance: METHOTREXATE
     Dosage: UNK
     Route: 042
  45. MISOPROSTOL [Interacting]
     Active Substance: MISOPROSTOL
     Indication: Rheumatoid arthritis
     Dosage: UNK
     Route: 065
  46. NAPROSYN [Interacting]
     Active Substance: NAPROXEN
     Indication: Rheumatoid arthritis
     Dosage: UNK
     Route: 065
  47. NAPROXEN [Interacting]
     Active Substance: NAPROXEN
     Indication: Rheumatoid arthritis
     Dosage: UNK
     Route: 065
  48. NIFEDIPINE [Interacting]
     Active Substance: NIFEDIPINE
     Indication: Rheumatoid arthritis
     Dosage: UNK
     Route: 065
  49. ORENCIA [Interacting]
     Active Substance: ABATACEPT
     Indication: Product used for unknown indication
     Dosage: UNK
     Route: 065
  50. ORENCIA [Interacting]
     Active Substance: ABATACEPT
     Dosage: UNK
     Route: 065
  51. ORENCIA [Interacting]
     Active Substance: ABATACEPT
     Dosage: 750 MILLIGRAM, EVERY WEEK
     Route: 058
  52. PREDNISONE [Interacting]
     Active Substance: PREDNISONE
     Indication: Rheumatoid arthritis
     Dosage: UNK
     Route: 065
  53. RITUXIMAB [Interacting]
     Active Substance: RITUXIMAB
     Indication: Product used for unknown indication
     Dosage: 2000 MILLIGRAM
     Route: 042
  54. SULFASALAZINE [Interacting]
     Active Substance: SULFASALAZINE
     Indication: Product used for unknown indication
     Dosage: UNK
     Route: 065
  55. PREDNISONE [Interacting]
     Active Substance: PREDNISONE
     Indication: Product used for unknown indication
     Dosage: UNK
     Route: 065
  56. XELJANZ [Interacting]
     Active Substance: TOFACITINIB CITRATE
     Indication: Rheumatoid arthritis
     Dosage: 1 DOSAGE FORM, TWO TIMES A DAY
     Route: 048
  57. XELJANZ [Interacting]
     Active Substance: TOFACITINIB CITRATE
     Dosage: 5 MILLIGRAM, TWO TIMES A DAY
     Route: 048
  58. TOFACITINIB [Concomitant]
     Active Substance: TOFACITINIB
     Indication: Product used for unknown indication
     Dosage: UNK
     Route: 065

REACTIONS (26)
  - Anaphylactic reaction [Not Recovered/Not Resolved]
  - Arthralgia [Not Recovered/Not Resolved]
  - Asthenia [Not Recovered/Not Resolved]
  - Blood cholesterol increased [Not Recovered/Not Resolved]
  - Condition aggravated [Not Recovered/Not Resolved]
  - Disease recurrence [Not Recovered/Not Resolved]
  - Drug intolerance [Not Recovered/Not Resolved]
  - Gastrooesophageal reflux disease [Not Recovered/Not Resolved]
  - Impaired work ability [Not Recovered/Not Resolved]
  - Malaise [Not Recovered/Not Resolved]
  - Mobility decreased [Not Recovered/Not Resolved]
  - Movement disorder [Not Recovered/Not Resolved]
  - Muscle spasms [Not Recovered/Not Resolved]
  - Pain [Not Recovered/Not Resolved]
  - Pain in jaw [Not Recovered/Not Resolved]
  - Rash [Not Recovered/Not Resolved]
  - Rheumatoid arthritis [Not Recovered/Not Resolved]
  - Swelling [Not Recovered/Not Resolved]
  - Synovitis [Not Recovered/Not Resolved]
  - Wrist deformity [Not Recovered/Not Resolved]
  - Therapeutic response decreased [Not Recovered/Not Resolved]
  - Drug interaction [Not Recovered/Not Resolved]
  - Off label use [Not Recovered/Not Resolved]
  - Drug ineffective [Not Recovered/Not Resolved]
  - Contraindicated product administered [Not Recovered/Not Resolved]
  - Product complaint [Not Recovered/Not Resolved]
